FAERS Safety Report 11155555 (Version 1)
Quarter: 2015Q2

REPORT INFORMATION
  Report Type: Spontaneous
  Country: DK (occurrence: DK)
  Receive Date: 20150602
  Receipt Date: 20150602
  Transmission Date: 20150821
  Serious: Yes (Hospitalization, Disabling)
  Sender: FDA-Public Use
  Company Number: PHHY2014DK083241

PATIENT
  Sex: Male

DRUGS (3)
  1. TEGRETOL [Suspect]
     Active Substance: CARBAMAZEPINE
     Dosage: UNK (GRADUALLY REDUCED DOSE)
     Route: 065
  2. LAMICTAL [Concomitant]
     Active Substance: LAMOTRIGINE
     Indication: GENERALISED TONIC-CLONIC SEIZURE
     Dosage: 450 MG, QD
     Route: 065
     Dates: start: 2003
  3. TEGRETOL [Suspect]
     Active Substance: CARBAMAZEPINE
     Indication: GENERALISED TONIC-CLONIC SEIZURE
     Dosage: 400 MG, BID
     Route: 048
     Dates: start: 1979

REACTIONS (7)
  - Physical disability [Not Recovered/Not Resolved]
  - Intervertebral disc protrusion [Unknown]
  - Back pain [Not Recovered/Not Resolved]
  - Spinal compression fracture [Unknown]
  - Spinal column stenosis [Unknown]
  - Osteoporosis [Not Recovered/Not Resolved]
  - Hip fracture [Unknown]

NARRATIVE: CASE EVENT DATE: 2004
